FAERS Safety Report 25023102 (Version 1)
Quarter: 2025Q1

REPORT INFORMATION
  Report Type: Spontaneous
  Country: GB (occurrence: GB)
  Receive Date: 20250228
  Receipt Date: 20250228
  Transmission Date: 20250409
  Serious: Yes (Other)
  Sender: RANBAXY
  Company Number: GB-MHRA-MED-202502122226584960-FHGQY

PATIENT
  Age: 15 Year
  Sex: Male
  Weight: 72 kg

DRUGS (1)
  1. ISOTRETINOIN [Suspect]
     Active Substance: ISOTRETINOIN
     Indication: Adverse drug reaction
     Route: 065
     Dates: start: 20241206

REACTIONS (2)
  - Muscle rupture [Recovering/Resolving]
  - Muscular weakness [Not Recovered/Not Resolved]

NARRATIVE: CASE EVENT DATE: 20250116
